FAERS Safety Report 7397535-9 (Version None)
Quarter: 2011Q2

REPORT INFORMATION
  Report Type: 
  Country: None (occurrence: None)
  Receive Date: 20110406
  Receipt Date: 20110324
  Transmission Date: 20111010
  Serious: Yes (Hospitalization, Other)
  Sender: FDA-Public Use
  Company Number: US-ASTRAZENECA-2010SE59074

PATIENT
  Age: 27430 Day
  Sex: Male

DRUGS (8)
  1. CRESTOR [Suspect]
     Indication: TYPE IIA HYPERLIPIDAEMIA
     Route: 048
     Dates: start: 20100901, end: 20101001
  2. PREDNISONE [Concomitant]
     Indication: DRUG ERUPTION
  3. NIACIN [Concomitant]
  4. ATENOLOL [Concomitant]
  5. PLAVIX [Concomitant]
  6. CRESTOR [Suspect]
     Route: 048
     Dates: start: 20101030
  7. ASPIRIN [Concomitant]
  8. CLINDAMYCIN [Concomitant]

REACTIONS (8)
  - CORONARY ARTERY OCCLUSION [None]
  - NO ADVERSE EVENT [None]
  - STENT PLACEMENT [None]
  - VESSEL PUNCTURE SITE HAEMATOMA [None]
  - ATHERECTOMY [None]
  - TOOTH FRACTURE [None]
  - THERAPEUTIC RESPONSE UNEXPECTED [None]
  - INFLUENZA [None]
